FAERS Safety Report 11238131 (Version 2)
Quarter: 2015Q3

REPORT INFORMATION
  Report Type: Spontaneous
  Country: US (occurrence: US)
  Receive Date: 20150703
  Receipt Date: 20150923
  Transmission Date: 20151125
  Serious: No
  Sender: FDA-Public Use
  Company Number: US-GLAXOSMITHKLINE-US2015GSK078844

PATIENT
  Sex: Female

DRUGS (1)
  1. LAMOTRIGINE PROLONGED-RELEASE TABLET [Suspect]
     Active Substance: LAMOTRIGINE
     Indication: SEIZURE
     Dosage: UNK, U
     Route: 065
     Dates: start: 2015

REACTIONS (5)
  - Feeling abnormal [Unknown]
  - Product substitution issue [Unknown]
  - Adverse drug reaction [Unknown]
  - Lethargy [Unknown]
  - Ill-defined disorder [Unknown]
